FAERS Safety Report 7977736-9 (Version None)
Quarter: 2011Q4

REPORT INFORMATION
  Report Type: 
  Country: None (occurrence: None)
  Receive Date: 20111214
  Receipt Date: 20111129
  Transmission Date: 20120403
  Serious: Yes (Other)
  Sender: FDA-Public Use
  Company Number: US-AMGEN-USASP2011058676

PATIENT
  Age: 57 Year
  Sex: Female
  Weight: 120.64 kg

DRUGS (10)
  1. LIDODERM [Concomitant]
     Dosage: UNK
  2. VICODIN [Concomitant]
     Dosage: 500 MG, UNK
  3. CRESTOR [Concomitant]
     Dosage: 5 MG, UNK
  4. HYDROCHLOROTHIAZIDE [Concomitant]
     Dosage: 12.5 MG, UNK
  5. VICODIN [Concomitant]
     Dosage: 50 MG, UNK
  6. ENBREL [Suspect]
     Indication: RHEUMATOID ARTHRITIS
     Dosage: 50 MG, 2 TIMES/WK
     Dates: start: 20111005
  7. INDERAL [Concomitant]
     Dosage: 160 MG, UNK
  8. CYMBALTA [Concomitant]
     Dosage: 60 MG, UNK
  9. ENBREL [Suspect]
     Indication: ANKYLOSING SPONDYLITIS
     Dosage: 50 MG, QWK
     Dates: start: 20110606, end: 20111005
  10. VITAMIN D [Concomitant]
     Dosage: 50000 IU, QWK
     Dates: start: 20110501

REACTIONS (2)
  - CELLULITIS [None]
  - FLUSHING [None]
